FAERS Safety Report 9051542 (Version 1)
Quarter: 2013Q1

REPORT INFORMATION
  Report Type: Spontaneous
  Country: US (occurrence: US)
  Receive Date: 20130207
  Receipt Date: 20130207
  Transmission Date: 20140127
  Serious: No
  Sender: FDA-Public Use
  Company Number: US-009507513-1301USA014792

PATIENT
  Sex: Male

DRUGS (1)
  1. DORZOLAMIDE HYDROCHLORIDE (+) TIMOLOL MALEATE [Suspect]
     Route: 047

REACTIONS (4)
  - Wrong technique in drug usage process [Unknown]
  - Drug dose omission [Unknown]
  - Liquid product physical issue [Unknown]
  - Foreign body in eye [Unknown]
